FAERS Safety Report 8538114-7 (Version None)
Quarter: 2012Q3

REPORT INFORMATION
  Report Type: 
  Country: None (occurrence: None)
  Receive Date: 20120725
  Receipt Date: 20120719
  Transmission Date: 20120928
  Serious: Yes (Other)
  Sender: FDA-Public Use
  Company Number: CL-ABBOTT-12P-034-0954879-00

PATIENT
  Sex: Female
  Weight: 54 kg

DRUGS (4)
  1. METHOTREXATE [Concomitant]
     Indication: PSORIATIC ARTHROPATHY
     Route: 048
     Dates: start: 20110101
  2. FOLIC ACID [Concomitant]
     Indication: PSORIATIC ARTHROPATHY
     Route: 048
     Dates: start: 20100101
  3. ACETHYLSALICYCLIC [Concomitant]
     Indication: PSORIATIC ARTHROPATHY
     Route: 048
     Dates: start: 20100101
  4. HUMIRA [Suspect]
     Indication: PSORIATIC ARTHROPATHY
     Route: 058
     Dates: start: 20080301

REACTIONS (3)
  - FATIGUE [None]
  - DYSPHONIA [None]
  - BRONCHOPNEUMONIA [None]
